FAERS Safety Report 6195422-5 (Version None)
Quarter: 2009Q2

REPORT INFORMATION
  Report Type: 
  Country: None (occurrence: None)
  Receive Date: 20090519
  Receipt Date: 20090509
  Transmission Date: 20091009
  Serious: Yes (Hospitalization)
  Sender: FDA-Public Use
  Company Number: CN-JNJFOC-20090502876

PATIENT
  Age: 50 Year
  Sex: Female

DRUGS (3)
  1. TYLENOL [Suspect]
     Indication: NASOPHARYNGITIS
  2. TYLENOL [Suspect]
     Indication: DIZZINESS
  3. TYLENOL [Suspect]
     Indication: OROPHARYNGEAL PAIN

REACTIONS (3)
  - CHEST DISCOMFORT [None]
  - FATIGUE [None]
  - HYPERSENSITIVITY [None]
